FAERS Safety Report 9184403 (Version 1)
Quarter: 2013Q1

REPORT INFORMATION
  Report Type: Spontaneous
  Country: BR (occurrence: BR)
  Receive Date: 20130322
  Receipt Date: 20130322
  Transmission Date: 20140127
  Serious: Yes (Death, Other)
  Sender: FDA-Public Use
  Company Number: BR-AMGEN-BRASP2013019723

PATIENT
  Age: 64 Year
  Sex: Female
  Weight: 70 kg

DRUGS (4)
  1. ENBREL [Suspect]
     Indication: RHEUMATOID ARTHRITIS
     Dosage: 50 MG, ONCE WEEKLY
     Route: 058
     Dates: start: 2011, end: 201302
  2. CYMBALTA [Concomitant]
     Dosage: UNK
  3. RIVOTRIL [Concomitant]
     Dosage: UNK
  4. NOVALGINA [Concomitant]
     Dosage: UNK

REACTIONS (2)
  - Death [Fatal]
  - Brain abscess [Unknown]
